FAERS Safety Report 6818545-3 (Version None)
Quarter: 2010Q2

REPORT INFORMATION
  Report Type: 
  Country: None (occurrence: None)
  Receive Date: 20100630
  Receipt Date: 20100615
  Transmission Date: 20101027
  Serious: Yes (Death, Hospitalization)
  Sender: FDA-Public Use
  Company Number: 2010002452

PATIENT
  Age: 50 Year
  Sex: Female
  Weight: 50 kg

DRUGS (7)
  1. ERLOTINIB HYDROCHLORIDE [Suspect]
     Indication: LUNG ADENOCARCINOMA
     Dosage: (150 MG;QD), ORAL
     Route: 048
     Dates: start: 20081202, end: 20090123
  2. NIZATIDINE [Concomitant]
  3. NAPROXEN [Concomitant]
  4. METHYCOBAL (MECOBALAMIN) [Concomitant]
  5. MUCOSOLVAN (AMBROXOL HYDROCHLORIDE) [Concomitant]
  6. HUSCODE (HUSCODE) [Concomitant]
  7. CLARITHROMYCIN [Concomitant]

REACTIONS (2)
  - DERMATITIS [None]
  - PNEUMONIA [None]
